FAERS Safety Report 17519478 (Version 1)
Quarter: 2020Q1

REPORT INFORMATION
  Report Type: Spontaneous
  Country: US (occurrence: US)
  Receive Date: 20200228
  Receipt Date: 20200228
  Transmission Date: 20200409
  Serious: No
  Sender: FDA-Public Use
  Company Number: None

PATIENT
  Age: 66 Year
  Sex: Female
  Weight: 79.38 kg

DRUGS (1)
  1. LEXAPRO [Suspect]
     Active Substance: ESCITALOPRAM OXALATE
     Indication: MAJOR DEPRESSION
     Dosage: ?          QUANTITY:1 PILL;?
     Dates: start: 20190116

REACTIONS (5)
  - Nightmare [None]
  - Sleep talking [None]
  - Incontinence [None]
  - Screaming [None]
  - Bladder disorder [None]

NARRATIVE: CASE EVENT DATE: 20200101
